FAERS Safety Report 5424219-6 (Version None)
Quarter: 2007Q3

REPORT INFORMATION
  Report Type: 
  Country: None (occurrence: None)
  Receive Date: 20070823
  Receipt Date: 20070814
  Transmission Date: 20080115
  Serious: Yes (Death)
  Sender: FDA-Public Use
  Company Number: BR-PFIZER INC-2007067826

PATIENT
  Sex: Male
  Weight: 58.5 kg

DRUGS (5)
  1. SU-011,248 [Suspect]
     Indication: METASTATIC RENAL CELL CARCINOMA
     Route: 048
  2. PARACETAMOL [Concomitant]
     Route: 048
  3. OLANZAPINE [Concomitant]
     Route: 048
     Dates: start: 20060925
  4. PROMETHAZINE [Concomitant]
     Route: 048
     Dates: start: 20061106
  5. LEVOTHYROXINE SODIUM [Concomitant]
     Route: 048
     Dates: start: 20070619

REACTIONS (4)
  - HYPERTENSION [None]
  - NEUTROPENIA [None]
  - SEPTIC SHOCK [None]
  - THROMBOCYTOPENIA [None]
